FAERS Safety Report 25365517 (Version 3)
Quarter: 2025Q3

REPORT INFORMATION
  Report Type: Spontaneous
  Country: JP (occurrence: JP)
  Receive Date: 20250527
  Receipt Date: 20250806
  Transmission Date: 20251020
  Serious: Yes (Life-Threatening, Hospitalization, Other)
  Sender: MERCK SHARP & DOHME LLC
  Company Number: JP-009507513-2289615

PATIENT
  Age: 67 Year
  Sex: Male
  Weight: 58.8 kg

DRUGS (8)
  1. KEYTRUDA [Suspect]
     Active Substance: PEMBROLIZUMAB
     Indication: Non-small cell lung cancer
     Route: 042
     Dates: start: 20230106, end: 20230310
  2. PEMETREXED [Concomitant]
     Active Substance: PEMETREXED
     Route: 042
  3. CARBOPLATIN [Concomitant]
     Active Substance: CARBOPLATIN
     Route: 042
  4. PREDNISOLONE [Concomitant]
     Active Substance: PREDNISOLONE
     Route: 065
  5. REBAMIPIDE [Concomitant]
     Active Substance: REBAMIPIDE
  6. RUPAFIN [Concomitant]
     Active Substance: RUPATADINE FUMARATE
  7. LIOTHYRONINE SODIUM [Concomitant]
     Active Substance: LIOTHYRONINE SODIUM
  8. GARENOXACIN MESYLATE [Concomitant]
     Active Substance: GARENOXACIN MESYLATE

REACTIONS (3)
  - Immune-mediated hepatic disorder [Recovered/Resolved]
  - Hypothyroidism [Unknown]
  - Immune-mediated thyroiditis [Recovered/Resolved]

NARRATIVE: CASE EVENT DATE: 20230309
